FAERS Safety Report 7652080-8 (Version None)
Quarter: 2011Q3

REPORT INFORMATION
  Report Type: 
  Country: None (occurrence: None)
  Receive Date: 20110803
  Receipt Date: 20110729
  Transmission Date: 20111222
  Serious: No
  Sender: FDA-Public Use
  Company Number: US-BIOGENIDEC-2011BI028485

PATIENT
  Sex: Female

DRUGS (1)
  1. AVONEX [Suspect]
     Indication: MULTIPLE SCLEROSIS
     Route: 030
     Dates: end: 20081230

REACTIONS (4)
  - FUNGAL INFECTION [None]
  - URINARY TRACT INFECTION [None]
  - URETHRAL OBSTRUCTION [None]
  - CYSTITIS [None]
